FAERS Safety Report 4679003-8 (Version None)
Quarter: 2005Q2

REPORT INFORMATION
  Report Type: 
  Country: None (occurrence: None)
  Receive Date: 20050531
  Receipt Date: 20050513
  Transmission Date: 20051028
  Serious: Yes (Hospitalization)
  Sender: FDA-Public Use
  Company Number: B01200501088

PATIENT
  Age: 68 Year
  Sex: Male

DRUGS (10)
  1. CLOPIDOGREL BISULFATE [Suspect]
     Indication: ISCHAEMIA
     Dosage: 75 MG QD
     Route: 048
     Dates: start: 20021107, end: 20050128
  2. CLOPIDOGREL BISULFATE [Suspect]
     Indication: PROPHYLAXIS
     Dosage: 75 MG QD
     Route: 048
     Dates: start: 20021107, end: 20050128
  3. ASTRIX (ACETYLSALICYLIC ACID) [Concomitant]
  4. TRAMADOL HCL [Concomitant]
  5. PRAZOSIN [Concomitant]
  6. TEMAZEPAM [Concomitant]
  7. CHARCOAL (CHARCOAL, ACTIVATED) [Concomitant]
  8. SIMVASTATIN [Concomitant]
  9. SOMAC (PANTOPRAZOLE SODIUM) [Concomitant]
  10. CHOP-R-REGIMEN (RITUXIMAB/CYCLOPHOSPHAMIDE/DOXORUBICIN/VINCRISTINE/PRE [Concomitant]

REACTIONS (5)
  - CONFUSIONAL STATE [None]
  - CONSTIPATION [None]
  - FEBRILE NEUTROPENIA [None]
  - NON-HODGKIN'S LYMPHOMA [None]
  - ORTHOSTATIC HYPOTENSION [None]
